FAERS Safety Report 13177378 (Version 1)
Quarter: 2017Q1

REPORT INFORMATION
  Report Type: Report from Study
  Country: US (occurrence: US)
  Receive Date: 20170201
  Receipt Date: 20170201
  Transmission Date: 20170428
  Serious: Yes (Hospitalization)
  Sender: FDA-Public Use
  Company Number: US-EXELIXIS-CABO-16006040

PATIENT
  Age: 45 Year
  Sex: Female
  Weight: 70.5 kg

DRUGS (13)
  1. MARINOL [Concomitant]
     Active Substance: DRONABINOL
  2. LORAZEPAM. [Concomitant]
     Active Substance: LORAZEPAM
  3. FENTANYL. [Concomitant]
     Active Substance: FENTANYL
  4. NYSTATIN. [Concomitant]
     Active Substance: NYSTATIN
  5. ONDANSETRON [Concomitant]
     Active Substance: ONDANSETRON
  6. OXYCONTIN [Concomitant]
     Active Substance: OXYCODONE HYDROCHLORIDE
  7. COLACE [Concomitant]
     Active Substance: DOCUSATE SODIUM
  8. RITALIN [Concomitant]
     Active Substance: METHYLPHENIDATE HYDROCHLORIDE
  9. ARIXTRA [Concomitant]
     Active Substance: FONDAPARINUX SODIUM
  10. ZOLOFT [Concomitant]
     Active Substance: SERTRALINE HYDROCHLORIDE
  11. PROAIR HFA [Concomitant]
     Active Substance: ALBUTEROL SULFATE
  12. COMETRIQ [Suspect]
     Active Substance: CABOZANTINIB S-MALATE
     Indication: LUNG NEOPLASM MALIGNANT
     Dosage: 80 MG, QD
     Route: 048
     Dates: start: 20151218, end: 20160308
  13. OXYCODONE [Concomitant]
     Active Substance: OXYCODONE

REACTIONS (19)
  - Fatigue [Unknown]
  - Oropharyngeal pain [Unknown]
  - Malignant neoplasm progression [Not Recovered/Not Resolved]
  - Cough [Unknown]
  - Insomnia [Unknown]
  - Vomiting [Recovered/Resolved]
  - Dyspnoea [Unknown]
  - Off label use [Unknown]
  - Dysphagia [Unknown]
  - Cancer pain [Not Recovered/Not Resolved]
  - Dry mouth [Unknown]
  - Nausea [Unknown]
  - Drug ineffective for unapproved indication [Unknown]
  - Weight decreased [Unknown]
  - Malaise [Unknown]
  - Arthralgia [Unknown]
  - Depression [Unknown]
  - Myalgia [Unknown]
  - Anxiety [Unknown]

NARRATIVE: CASE EVENT DATE: 20160307
